FAERS Safety Report 4283294-5 (Version None)
Quarter: 2004Q1

REPORT INFORMATION
  Report Type: 
  Country: None (occurrence: None)
  Receive Date: 20040129
  Receipt Date: 20040122
  Transmission Date: 20041129
  Serious: Yes (Death)
  Sender: FDA-Public Use
  Company Number: 04-00028

PATIENT

DRUGS (2)
  1. KADIAN [Suspect]
  2. METHAMPETAMINE [Suspect]

REACTIONS (2)
  - DRUG TOXICITY [None]
  - HYPERTHERMIA [None]
